FAERS Safety Report 5474519-9 (Version None)
Quarter: 2007Q4

REPORT INFORMATION
  Report Type: 
  Country: None (occurrence: None)
  Receive Date: 20071002
  Receipt Date: 20070924
  Transmission Date: 20080405
  Serious: Yes (Other)
  Sender: FDA-Public Use
  Company Number: US-ROXANE LABORATORIES, INC-2007-BP-21563RO

PATIENT
  Age: 14 Year
  Sex: Female

DRUGS (8)
  1. METHOTREXATE [Suspect]
     Indication: OSTEOSARCOMA LOCALISED
     Route: 042
  2. LEUCOVORIN CALCIUM [Suspect]
     Indication: DRUG LEVEL ABOVE THERAPEUTIC
  3. CISPLATIN [Suspect]
     Indication: OSTEOSARCOMA LOCALISED
  4. DOXORUBICIN HCL [Suspect]
     Indication: OSTEOSARCOMA LOCALISED
  5. CT CONTRAST DYE [Suspect]
     Indication: COMPUTERISED TOMOGRAM
  6. IFOSFAMIDE [Suspect]
     Indication: OSTEOSARCOMA LOCALISED
  7. ACYCLOVIR [Concomitant]
  8. IFOSFAMIDE [Concomitant]

REACTIONS (11)
  - ABDOMINAL MASS [None]
  - BLOOD CREATININE INCREASED [None]
  - DRUG TOXICITY [None]
  - HYPERTENSION [None]
  - HYPOTENSION [None]
  - MUCOSAL INFLAMMATION [None]
  - NEUTROPENIA [None]
  - PANCREATITIS [None]
  - PYREXIA [None]
  - RENAL FAILURE [None]
  - VOMITING [None]
